FAERS Safety Report 20530795 (Version 6)
Quarter: 2023Q4

REPORT INFORMATION
  Report Type: Spontaneous
  Country: US (occurrence: US)
  Receive Date: 20220301
  Receipt Date: 20231018
  Transmission Date: 20240110
  Serious: Yes (Hospitalization, Disabling, Other)
  Sender: FDA-Public Use
  Company Number: US-ORGANON-O2202USA002309

PATIENT
  Sex: Female
  Weight: 131.3 kg

DRUGS (2)
  1. SINGULAIR [Suspect]
     Active Substance: MONTELUKAST SODIUM
     Indication: Asthma
     Dosage: 1 TABLET, EVERY PM
     Route: 048
     Dates: start: 1994
  2. SINGULAIR [Suspect]
     Active Substance: MONTELUKAST SODIUM
     Indication: Hypersensitivity

REACTIONS (9)
  - Neuropsychological symptoms [Not Recovered/Not Resolved]
  - Umbilical hernia [Unknown]
  - Tonsillectomy [Unknown]
  - Gastric bypass [Unknown]
  - Cholecystectomy [Unknown]
  - Upper gastrointestinal haemorrhage [Unknown]
  - Major depression [Recovering/Resolving]
  - Suicidal ideation [Not Recovered/Not Resolved]
  - Panic attack [Not Recovered/Not Resolved]

NARRATIVE: CASE EVENT DATE: 19950101
